FAERS Safety Report 11862765 (Version 1)
Quarter: 2015Q4

REPORT INFORMATION
  Report Type: Other
  Country: GB (occurrence: GB)
  Receive Date: 20151223
  Receipt Date: 20151223
  Transmission Date: 20160305
  Serious: Yes (Other)
  Sender: FDA-Public Use
  Company Number: GB-MYLANLABS-2015M1045188

PATIENT

DRUGS (5)
  1. MESALAZINE [Concomitant]
     Active Substance: MESALAMINE
     Dosage: 1 DF, QD (INSERT ONE AT NIGHT)
     Dates: start: 20151110
  2. ADCAL                              /00056901/ [Concomitant]
     Active Substance: CARBAZOCHROME
     Dosage: 2 DF, QD
     Dates: start: 20151019, end: 20151116
  3. PREDNISOLONE. [Concomitant]
     Active Substance: PREDNISOLONE
     Dosage: TO BE INSERTED ONCE OR TWICE A DAY
     Route: 054
     Dates: start: 20150828
  4. SALOFALK                           /00000301/ [Concomitant]
     Active Substance: MESALAMINE
     Dosage: 1 DF, QD (INSERT AT NIGHT)
     Dates: start: 20150828, end: 20151110
  5. AZATHIOPRINE. [Suspect]
     Active Substance: AZATHIOPRINE
     Dosage: UNK
     Dates: start: 20151111

REACTIONS (3)
  - Blood potassium increased [Unknown]
  - Abdominal pain [Unknown]
  - Vomiting [Recovered/Resolved]

NARRATIVE: CASE EVENT DATE: 20151118
